FAERS Safety Report 19522061 (Version 2)
Quarter: 2021Q3

REPORT INFORMATION
  Report Type: Spontaneous
  Country: US (occurrence: US)
  Receive Date: 20210713
  Receipt Date: 20210922
  Transmission Date: 20211014
  Serious: No
  Sender: FDA-Public Use
  Company Number: US-SA-2021SA226962

PATIENT
  Age: 43 Year
  Sex: Female

DRUGS (1)
  1. DUPIXENT [Suspect]
     Active Substance: DUPILUMAB
     Indication: NASAL POLYPS
     Dosage: 300 MG
     Route: 058
     Dates: start: 20210614

REACTIONS (10)
  - Injection site warmth [Unknown]
  - Throat irritation [Unknown]
  - Rhinorrhoea [Unknown]
  - Chest discomfort [Unknown]
  - Cough [Unknown]
  - Injection site erythema [Unknown]
  - Injection site urticaria [Unknown]
  - Dysphonia [Unknown]
  - Injection site hypersensitivity [Unknown]
  - Injection site pruritus [Unknown]

NARRATIVE: CASE EVENT DATE: 20210614
